FAERS Safety Report 11394974 (Version 6)
Quarter: 2016Q1

REPORT INFORMATION
  Report Type: Spontaneous
  Country: US (occurrence: US)
  Receive Date: 20150819
  Receipt Date: 20160120
  Transmission Date: 20160525
  Serious: Yes (Hospitalization, Other)
  Sender: FDA-Public Use
  Company Number: US-PFIZER INC-2015276275

PATIENT
  Age: 67 Year
  Sex: Female
  Weight: 58 kg

DRUGS (5)
  1. CRESTOR [Concomitant]
     Active Substance: ROSUVASTATIN CALCIUM
     Indication: BLOOD CHOLESTEROL
     Dosage: 10 MG, 1X/DAY
  2. DICLOFENAC POTASSIUM. [Suspect]
     Active Substance: DICLOFENAC POTASSIUM
     Indication: ARTHRITIS
     Dosage: 50 MG, 3X/DAY
  3. DEPO-MEDROL [Suspect]
     Active Substance: METHYLPREDNISOLONE ACETATE
     Dosage: 80 MG, SINGLE (80 MG SHOT)
     Dates: start: 20150729
  4. DEPO-MEDROL [Suspect]
     Active Substance: METHYLPREDNISOLONE ACETATE
     Indication: ARTHRITIS
     Dosage: 80 MG, SINGLE (INJECTION IN HER BUTT, ONCE)
     Dates: start: 20150629
  5. CORTIGEN [Concomitant]
     Dosage: UNK

REACTIONS (17)
  - Dyspepsia [Recovered/Resolved]
  - Blood urine present [Recovered/Resolved]
  - Weight decreased [Unknown]
  - Headache [Unknown]
  - Insomnia [Unknown]
  - Dyspnoea [Recovering/Resolving]
  - Hyperhidrosis [Recovered/Resolved]
  - Abdominal distension [Unknown]
  - Vision blurred [Recovered/Resolved]
  - Gastric ulcer [Recovering/Resolving]
  - Gastrooesophageal reflux disease [Unknown]
  - Malaise [Unknown]
  - Pain [Unknown]
  - Spinal deformity [Unknown]
  - Tongue disorder [Not Recovered/Not Resolved]
  - Gastric disorder [Recovered/Resolved]
  - Swelling [Recovered/Resolved]

NARRATIVE: CASE EVENT DATE: 20150629
